FAERS Safety Report 6130329-0 (Version None)
Quarter: 2009Q1

REPORT INFORMATION
  Report Type: 
  Country: None (occurrence: None)
  Receive Date: 20090324
  Receipt Date: 20090320
  Transmission Date: 20090719
  Serious: Yes (Other)
  Sender: FDA-Public Use
  Company Number: US-ROXANE LABORATORIES, INC.-2009-RO-00267RO

PATIENT
  Age: 50 Year
  Sex: Female

DRUGS (5)
  1. METHADONE HCL [Suspect]
     Indication: DRUG DEPENDENCE
     Dosage: 108MG
  2. LISINOPRIL [Suspect]
     Dosage: 10MG
  3. ALDACTONE [Suspect]
     Dosage: 25MG
  4. VERAPAMIL [Suspect]
     Dosage: 240MG
  5. MULTI-VITAMIN [Suspect]

REACTIONS (1)
  - DRUG INEFFECTIVE [None]
